FAERS Safety Report 6656272-6 (Version None)
Quarter: 2010Q1

REPORT INFORMATION
  Report Type: 
  Country: None (occurrence: None)
  Receive Date: 20100326
  Receipt Date: 20100326
  Transmission Date: 20100710
  Serious: Yes (Other)
  Sender: FDA-Public Use
  Company Number: None

PATIENT
  Age: 48 Year
  Sex: Female
  Weight: 95.8904 kg

DRUGS (7)
  1. EXENATIDE [Suspect]
  2. SITAGLIPTIN/MEFORMIN [Suspect]
  3. INSULIN GLULISINE [Suspect]
  4. ROSUVASTATIN [Suspect]
  5. INSULIN GLARGINE [Suspect]
  6. CARVEDILOL [Suspect]
  7. OLMESARTAN MEDOXOMIL AND HYDROCHLOROTHIZIDE [Suspect]

REACTIONS (1)
  - THYROID CANCER [None]
